FAERS Safety Report 4410116-1 (Version None)
Quarter: 2004Q3

REPORT INFORMATION
  Report Type: 
  Country: None (occurrence: None)
  Receive Date: 20040728
  Receipt Date: 20040719
  Transmission Date: 20050211
  Serious: Yes (Hospitalization, Other)
  Sender: FDA-Public Use
  Company Number: PHEH2004US07980

PATIENT
  Age: 66 Year
  Sex: Male

DRUGS (13)
  1. DIOVAN [Suspect]
     Dosage: 80 MG, QD
     Route: 048
     Dates: start: 20031030
  2. PROCRIT [Suspect]
     Indication: ANAEMIA
     Route: 058
     Dates: start: 20040204
  3. ATENOLOL [Concomitant]
     Indication: HYPERTENSION
     Dates: start: 20030301
  4. LIPITOR [Concomitant]
     Indication: HYPERCHOLESTEROLAEMIA
     Dates: start: 20001101
  5. NORVASC [Concomitant]
     Indication: HYPERTENSION
     Dates: start: 20011101
  6. ACTOS [Concomitant]
     Indication: DIABETES MELLITUS
     Dates: start: 20030601
  7. GLYBURIDE [Concomitant]
     Indication: DIABETES MELLITUS
     Dates: start: 19930101
  8. FERRLECIT [Concomitant]
     Indication: ANAEMIA
     Route: 042
     Dates: start: 20040127
  9. KAYEXALATE [Concomitant]
     Indication: BLOOD POTASSIUM INCREASED
     Dates: start: 20020201
  10. SODIUM BICARBONATE [Concomitant]
     Indication: METABOLIC ACIDOSIS
     Dates: start: 20030601
  11. ASPIRIN [Concomitant]
     Indication: PROPHYLAXIS
     Dosage: BABY ASPIRIN
  12. ASPIRIN [Concomitant]
     Route: 048
  13. MULTI-VITAMINS [Concomitant]

REACTIONS (4)
  - ASTHENIA [None]
  - BLOOD CREATININE INCREASED [None]
  - HYPERKALAEMIA [None]
  - TRANSIENT ISCHAEMIC ATTACK [None]
